FAERS Safety Report 4484515-6 (Version None)
Quarter: 2004Q3

REPORT INFORMATION
  Report Type: 
  Country: None (occurrence: None)
  Receive Date: 20040921
  Receipt Date: 20031112
  Transmission Date: 20050211
  Serious: No
  Sender: FDA-Public Use
  Company Number: 163-20785-03120172

PATIENT
  Age: 60 Year
  Sex: Female

DRUGS (5)
  1. THALOMID [Suspect]
     Indication: MULTIPLE MYELOMA
     Dosage: 200 MG, DAILY, ORAL
     Route: 048
     Dates: start: 20031008, end: 20031109
  2. DECARDON (DEXAMETHASONE) [Concomitant]
  3. ZOMETA [Concomitant]
  4. ANTIOXIDANT [Concomitant]
  5. TOPROL-XL [Concomitant]

REACTIONS (6)
  - ASTHENIA [None]
  - CONSTIPATION [None]
  - FAECALOMA [None]
  - HYPERTENSION [None]
  - PITTING OEDEMA [None]
  - TREMOR [None]
